FAERS Safety Report 25025808 (Version 1)
Quarter: 2025Q1

REPORT INFORMATION
  Report Type: Spontaneous
  Country: US (occurrence: US)
  Receive Date: 20250301
  Receipt Date: 20250301
  Transmission Date: 20250408
  Serious: No
  Sender: NOVO NORDISK
  Company Number: US-NOVOPROD-1251947

PATIENT
  Sex: Female

DRUGS (2)
  1. VICTOZA [Suspect]
     Active Substance: LIRAGLUTIDE
     Indication: Type 1 diabetes mellitus
  2. VICTOZA [Suspect]
     Active Substance: LIRAGLUTIDE
     Indication: Seizure
     Route: 058

REACTIONS (2)
  - Cardiac disorder [Unknown]
  - Off label use [Unknown]
